FAERS Safety Report 22349748 (Version 1)
Quarter: 2023Q2

REPORT INFORMATION
  Report Type: Spontaneous
  Country: US (occurrence: US)
  Receive Date: 20230522
  Receipt Date: 20230522
  Transmission Date: 20230721
  Serious: No
  Sender: FDA-Public Use
  Company Number: US-BoehringerIngelheim-2023-BI-238830

PATIENT
  Age: 74 Year
  Sex: Female

DRUGS (3)
  1. JARDIANCE [Suspect]
     Active Substance: EMPAGLIFLOZIN
     Indication: Type 2 diabetes mellitus
     Route: 048
     Dates: start: 2021, end: 202211
  2. METFORMIN [Concomitant]
     Active Substance: METFORMIN HYDROCHLORIDE
     Indication: Type 2 diabetes mellitus
  3. OZEMPIC [Concomitant]
     Active Substance: SEMAGLUTIDE
     Indication: Product used for unknown indication

REACTIONS (6)
  - Vulvovaginal pruritus [Recovering/Resolving]
  - Vulvovaginal rash [Recovering/Resolving]
  - Vulvovaginal injury [Recovered/Resolved]
  - Genital scarring [Not Recovered/Not Resolved]
  - Hyperglycaemia [Recovering/Resolving]
  - Genital burning sensation [Unknown]

NARRATIVE: CASE EVENT DATE: 20221101
